FAERS Safety Report 4448494-X (Version None)
Quarter: 2004Q3

REPORT INFORMATION
  Report Type: 
  Country: None (occurrence: None)
  Receive Date: 20040914
  Receipt Date: 20040902
  Transmission Date: 20050211
  Serious: Yes (Other)
  Sender: FDA-Public Use
  Company Number: GB-JNJFOC-20040901434

PATIENT
  Sex: Female

DRUGS (1)
  1. REMICADE [Suspect]
     Indication: POLYMYALGIA RHEUMATICA
     Route: 042

REACTIONS (1)
  - BREAST CANCER [None]
